FAERS Safety Report 14021895 (Version 4)
Quarter: 2018Q1

REPORT INFORMATION
  Report Type: Spontaneous
  Country: IT (occurrence: IT)
  Receive Date: 20170928
  Receipt Date: 20180123
  Transmission Date: 20180508
  Serious: Yes (Hospitalization, Other)
  Sender: FDA-Public Use
  Company Number: PHHY2017IT142238

PATIENT
  Age: 52 Year
  Sex: Male

DRUGS (6)
  1. ALCOHOL. [Interacting]
     Active Substance: ALCOHOL
     Indication: PRODUCT USED FOR UNKNOWN INDICATION
     Route: 065
  2. BLOPRESID [Concomitant]
     Active Substance: CANDESARTAN CILEXETIL\HYDROCHLOROTHIAZIDE
     Indication: PRODUCT USED FOR UNKNOWN INDICATION
     Dosage: UNK
     Route: 065
     Dates: start: 20170917
  3. QUETIAPINE. [Interacting]
     Active Substance: QUETIAPINE
     Indication: PSYCHOTIC DISORDER
     Dosage: 100 MG, QD
     Route: 048
     Dates: start: 20170917, end: 20170917
  4. TICLOPIDINE [Concomitant]
     Active Substance: TICLOPIDINE
     Indication: PRODUCT USED FOR UNKNOWN INDICATION
     Dosage: UNK
     Route: 065
     Dates: start: 20170917
  5. DICLOFENAC SODIUM. [Suspect]
     Active Substance: DICLOFENAC SODIUM
     Indication: INFLAMMATION
     Dosage: 200 MG, QD
     Route: 048
     Dates: start: 20170917, end: 20170917
  6. GABAPENTIN. [Interacting]
     Active Substance: GABAPENTIN
     Indication: EPILEPSY
     Dosage: 100 MG, QD
     Route: 048
     Dates: start: 20170917

REACTIONS (4)
  - Alcohol interaction [Unknown]
  - Intentional self-injury [Unknown]
  - Drug abuse [Unknown]
  - Slow speech [Unknown]

NARRATIVE: CASE EVENT DATE: 20170917
